FAERS Safety Report 6862939-7 (Version None)
Quarter: 2010Q2

REPORT INFORMATION
  Report Type: 
  Country: None (occurrence: None)
  Receive Date: 20100528
  Receipt Date: 20100407
  Transmission Date: 20101027
  Serious: No
  Sender: FDA-Public Use
  Company Number: 009915

PATIENT
  Sex: Female

DRUGS (1)
  1. LACOSAMIDE [Suspect]
     Indication: CONVULSION
     Dosage: ORAL, TITRATING TO 400MG DOSE ORAL
     Route: 048

REACTIONS (2)
  - DIPLOPIA [None]
  - NAUSEA [None]
